FAERS Safety Report 20699283 (Version 1)
Quarter: 2022Q2

REPORT INFORMATION
  Report Type: Spontaneous
  Country: ES (occurrence: ES)
  Receive Date: 20220412
  Receipt Date: 20220412
  Transmission Date: 20220721
  Serious: Yes (Hospitalization, Other)
  Sender: FDA-Public Use
  Company Number: ES-SA-SAC20211224000717

PATIENT
  Age: 68 Year
  Sex: Female
  Weight: 71.3 kg

DRUGS (2)
  1. LANTUS SOLOSTAR [Suspect]
     Active Substance: INSULIN GLARGINE
     Indication: Type 2 diabetes mellitus
     Dosage: 36 IU, QD
     Route: 058
  2. APIDRA [Suspect]
     Active Substance: INSULIN GLULISINE
     Indication: Type 2 diabetes mellitus
     Dosage: UNK
     Route: 058

REACTIONS (17)
  - Hyperglycaemia [Unknown]
  - Hypoglycaemia [Recovered/Resolved]
  - Asphyxia [Recovering/Resolving]
  - Choking [Recovering/Resolving]
  - Pelvic fracture [Unknown]
  - Malaise [Recovered/Resolved]
  - Tremor [Recovered/Resolved]
  - Nervousness [Unknown]
  - Chest discomfort [Unknown]
  - Fall [Recovered/Resolved]
  - Pain [Unknown]
  - Self-injurious ideation [Recovering/Resolving]
  - Depression [Recovering/Resolving]
  - Nasopharyngitis [Recovering/Resolving]
  - Limb operation [Unknown]
  - Visual impairment [Unknown]
  - Hyperglycaemia [Unknown]
